FAERS Safety Report 22134647 (Version 2)
Quarter: 2023Q2

REPORT INFORMATION
  Report Type: Spontaneous
  Country: FR (occurrence: FR)
  Receive Date: 20230324
  Receipt Date: 20230410
  Transmission Date: 20230722
  Serious: Yes (Hospitalization)
  Sender: FDA-Public Use
  Company Number: None

PATIENT
  Age: 54 Year
  Sex: Female

DRUGS (9)
  1. ONDANSETRON [Suspect]
     Active Substance: ONDANSETRON
     Indication: Nausea
     Dosage: 4 MG MORNING AND EVENING
     Dates: start: 20230202, end: 20230223
  2. CEFEPIME [Suspect]
     Active Substance: CEFEPIME HYDROCHLORIDE
     Indication: Infection
     Dosage: 2 G EVERY 8 HOURS
     Dates: start: 20230126, end: 20230228
  3. PANTOPRAZOLE [Suspect]
     Active Substance: PANTOPRAZOLE
     Indication: Prophylaxis against gastrointestinal ulcer
     Dosage: 20 MG IN THE EVENING
     Dates: start: 20230109, end: 20230223
  4. NALOXEGOL [Suspect]
     Active Substance: NALOXEGOL
     Indication: Constipation
     Dosage: STRENGTH: 25 MG PER DAY
     Dates: start: 20230128, end: 20230223
  5. METRONIDAZOLE [Suspect]
     Active Substance: METRONIDAZOLE
     Indication: Infection
     Dosage: 500 MG EVERY 8 HOURS
     Dates: start: 20230215, end: 20230221
  6. DAPTOMYCIN [Concomitant]
     Active Substance: DAPTOMYCIN
     Indication: Infection
     Dosage: 500 MG PER DAY
     Dates: start: 20230215, end: 20230221
  7. OXYCODONE HYDROCHLORIDE [Concomitant]
     Active Substance: OXYCODONE HYDROCHLORIDE
     Indication: Pain
     Dates: start: 202301
  8. PRAZEPAM [Concomitant]
     Active Substance: PRAZEPAM
     Indication: Anxiety
     Dates: start: 202301
  9. LOVENOX [Concomitant]
     Active Substance: ENOXAPARIN SODIUM
     Indication: Thrombosis prophylaxis
     Dosage: 4000 IU EVERY DAY, 0.4 ML, SOLUTION FOR INJECTION IN CARTRIDGE
     Dates: start: 20230126

REACTIONS (1)
  - Neutropenia [Recovered/Resolved]

NARRATIVE: CASE EVENT DATE: 20230220
